FAERS Safety Report 9023659 (Version 2)
Quarter: 2013Q1

REPORT INFORMATION
  Report Type: Report from Study
  Country: DE (occurrence: DE)
  Receive Date: 20130121
  Receipt Date: 20130123
  Transmission Date: 20140127
  Serious: Yes (Death, Hospitalization, Other)
  Sender: FDA-Public Use
  Company Number: DE-ASTELLAS-2013US000742

PATIENT
  Age: 66 Year
  Sex: Male
  Weight: 79 kg

DRUGS (4)
  1. ERLOTINIB TABLET [Suspect]
     Indication: PANCREATIC CARCINOMA
     Dosage: 100 MG, UID/QD
     Route: 048
     Dates: start: 20121203
  2. GEMCITABINE [Concomitant]
     Indication: PANCREATIC CARCINOMA
     Dosage: 2090 MG, DAY 1 + 8 OF 15 DAY CYCLE
     Route: 042
     Dates: start: 20121203
  3. PANZYTRAT                          /00014701/ [Concomitant]
     Indication: PANCREATIC INSUFFICIENCY
     Dosage: 25000 IU, TID
     Route: 048
  4. RAMIPRIL [Concomitant]
     Indication: HYPERTENSION
     Dosage: 5 MG, BID
     Route: 048

REACTIONS (6)
  - Personality change [Not Recovered/Not Resolved]
  - Cerebral ischaemia [Unknown]
  - Pneumonia [Fatal]
  - Asthenia [Not Recovered/Not Resolved]
  - Malignant neoplasm progression [Fatal]
  - Diabetes mellitus [Recovered/Resolved]
